FAERS Safety Report 18205256 (Version 2)
Quarter: 2020Q3

REPORT INFORMATION
  Report Type: Report from Study
  Country: US (occurrence: US)
  Receive Date: 20200828
  Receipt Date: 20200904
  Transmission Date: 20201103
  Serious: Yes (Hospitalization, Other)
  Sender: FDA-Public Use
  Company Number: US-UCBSA-2019026205

PATIENT
  Age: 33 Year
  Sex: Female
  Weight: 66 kg

DRUGS (6)
  1. SYMPAZAN [Concomitant]
     Active Substance: CLOBAZAM
     Indication: PRODUCT USED FOR UNKNOWN INDICATION
  2. LACOSAMIDE. [Suspect]
     Active Substance: LACOSAMIDE
     Indication: SEIZURE
     Dosage: 300 MILLIGRAM, 2X/DAY (BID)
     Dates: start: 202003
  3. EPIDIOLEX [Concomitant]
     Active Substance: CANNABIDIOL
     Indication: SEIZURE
  4. LACOSAMIDE. [Suspect]
     Active Substance: LACOSAMIDE
     Indication: EPILEPSY
     Dosage: 200 MILLIGRAM, 2X/DAY (BID)
     Route: 048
     Dates: start: 20180830
  5. ONFI [Concomitant]
     Active Substance: CLOBAZAM
     Indication: SEIZURE
  6. TOPAMAX [Concomitant]
     Active Substance: TOPIRAMATE
     Indication: PRODUCT USED FOR UNKNOWN INDICATION

REACTIONS (14)
  - Therapy interrupted [Unknown]
  - Drug ineffective [Unknown]
  - Cognitive disorder [Unknown]
  - Overdose [Unknown]
  - Product availability issue [Unknown]
  - Fall [Unknown]
  - Seizure [Unknown]
  - Face injury [Unknown]
  - Eye contusion [Unknown]
  - Stress [Unknown]
  - Product use issue [Unknown]
  - Anxiety [Unknown]
  - Insurance issue [Unknown]
  - Intentional product misuse [Unknown]

NARRATIVE: CASE EVENT DATE: 20190413
